FAERS Safety Report 4364441-3 (Version None)
Quarter: 2004Q2

REPORT INFORMATION
  Report Type: 
  Country: None (occurrence: None)
  Receive Date: 20040525
  Receipt Date: 20040521
  Transmission Date: 20050107
  Serious: Yes (Death, Hospitalization)
  Sender: FDA-Public Use
  Company Number: US-GLAXOSMITHKLINE-A0511754A

PATIENT
  Age: 66 Year
  Sex: Male

DRUGS (2)
  1. LANOXIN [Suspect]
     Dosage: .25MG PER DAY
     Route: 048
     Dates: start: 19950101
  2. DIURETIC [Concomitant]

REACTIONS (5)
  - CARDIOACTIVE DRUG LEVEL DECREASED [None]
  - LOSS OF CONSCIOUSNESS [None]
  - PULSE ABSENT [None]
  - VENTRICULAR ARRHYTHMIA [None]
  - VOMITING [None]
